FAERS Safety Report 6494619-4 (Version None)
Quarter: 2009Q4

REPORT INFORMATION
  Report Type: 
  Country: None (occurrence: None)
  Receive Date: 20091214
  Receipt Date: 20090310
  Transmission Date: 20100525
  Serious: No
  Sender: FDA-Public Use
  Company Number: US-BRISTOL-MYERS SQUIBB COMPANY-14537716

PATIENT
  Age: 60 Year
  Sex: Male

DRUGS (3)
  1. ABILIFY [Suspect]
     Indication: MAJOR DEPRESSION
     Dosage: DOSE INCREASED OVER 1 YEAR
  2. ABILIFY [Suspect]
     Indication: ANXIETY
     Dosage: DOSE INCREASED OVER 1 YEAR
  3. PAXIL [Suspect]

REACTIONS (2)
  - TARDIVE DYSKINESIA [None]
  - TREMOR [None]
